FAERS Safety Report 23320109 (Version 1)
Quarter: 2023Q4

REPORT INFORMATION
  Report Type: Spontaneous
  Country: DE (occurrence: DE)
  Receive Date: 20231220
  Receipt Date: 20231220
  Transmission Date: 20240110
  Serious: Yes (Hospitalization, Other)
  Sender: FDA-Public Use
  Company Number: None

PATIENT
  Age: 32 Year
  Sex: Female
  Weight: 52 kg

DRUGS (1)
  1. DROSPIRENONE [Suspect]
     Active Substance: DROSPIRENONE
     Indication: Endometriosis
     Dosage: 4 MG
     Route: 048
     Dates: start: 20230307, end: 20231116

REACTIONS (17)
  - Anxiety [Recovering/Resolving]
  - Middle insomnia [Recovering/Resolving]
  - Decreased appetite [Recovering/Resolving]
  - Sick leave [Recovering/Resolving]
  - Headache [Recovering/Resolving]
  - General physical health deterioration [Recovering/Resolving]
  - Off label use [Unknown]
  - Nausea [Recovering/Resolving]
  - Dizziness [Recovering/Resolving]
  - Suicidal ideation [Recovering/Resolving]
  - Panic attack [Recovering/Resolving]
  - Sinus tachycardia [Recovering/Resolving]
  - Loss of libido [Recovering/Resolving]
  - Hot flush [Recovering/Resolving]
  - Depression [Recovering/Resolving]
  - Hyperhidrosis [Recovering/Resolving]
  - Weight decreased [Recovering/Resolving]

NARRATIVE: CASE EVENT DATE: 20230920
